FAERS Safety Report 7710276-0 (Version None)
Quarter: 2011Q3

REPORT INFORMATION
  Report Type: 
  Country: None (occurrence: None)
  Receive Date: 20110825
  Receipt Date: 20110815
  Transmission Date: 20111222
  Serious: Yes (Death, Hospitalization)
  Sender: FDA-Public Use
  Company Number: US-BAXTER-2011BH025835

PATIENT
  Sex: Female

DRUGS (2)
  1. DIANEAL [Suspect]
     Indication: PERITONEAL DIALYSIS
     Route: 033
     Dates: start: 20090929, end: 20110814
  2. DIANEAL [Suspect]
     Indication: PERITONEAL DIALYSIS
     Route: 033
     Dates: start: 20101111, end: 20110814

REACTIONS (6)
  - INFECTION [None]
  - DIZZINESS [None]
  - SEPSIS [None]
  - POSTOPERATIVE WOUND INFECTION [None]
  - GASTRIC INFECTION [None]
  - HYPOTENSION [None]
